FAERS Safety Report 5246482-7 (Version None)
Quarter: 2007Q1

REPORT INFORMATION
  Report Type: 
  Country: None (occurrence: None)
  Receive Date: 20070226
  Receipt Date: 20070215
  Transmission Date: 20070707
  Serious: Yes (Other)
  Sender: FDA-Public Use
  Company Number: PL-BRISTOL-MYERS SQUIBB COMPANY-13679535

PATIENT
  Age: 52 Year
  Sex: Female

DRUGS (4)
  1. PACLITAXEL [Suspect]
     Indication: OVARIAN CANCER
  2. CISPLATIN [Suspect]
     Indication: OVARIAN CANCER
  3. CYCLOPHOSPHAMIDE [Suspect]
     Indication: OVARIAN CANCER
  4. DOXORUBICIN HCL [Suspect]
     Indication: OVARIAN CANCER

REACTIONS (5)
  - ABDOMINAL PAIN [None]
  - ASCITES [None]
  - HYPERSENSITIVITY [None]
  - NAUSEA [None]
  - VOMITING [None]
